FAERS Safety Report 6847338-6 (Version None)
Quarter: 2010Q3

REPORT INFORMATION
  Report Type: 
  Country: None (occurrence: None)
  Receive Date: 20100716
  Receipt Date: 20100706
  Transmission Date: 20110219
  Serious: Yes (Other)
  Sender: FDA-Public Use
  Company Number: BR-BAYER-201016582LA

PATIENT
  Age: 29 Year
  Sex: Female
  Weight: 61 kg

DRUGS (1)
  1. YASMIN [Suspect]
     Indication: CONTRACEPTION
     Route: 048
     Dates: start: 20040101, end: 20060901

REACTIONS (2)
  - VARICOSE VEIN [None]
  - VARICOSE VEIN RUPTURED [None]
